FAERS Safety Report 14700069 (Version 2)
Quarter: 2018Q3

REPORT INFORMATION
  Report Type: Spontaneous
  Country: ES (occurrence: ES)
  Receive Date: 20180330
  Receipt Date: 20180724
  Transmission Date: 20181010
  Serious: Yes (Hospitalization)
  Sender: FDA-Public Use
  Company Number: ES-TEVA-2018-ES-874363

PATIENT
  Age: 80 Year
  Sex: Female

DRUGS (3)
  1. ENALAPRIL (2142A) [Interacting]
     Active Substance: ENALAPRIL
     Indication: HYPERTENSION
     Dosage: 10MG EACH 24 HORAS
     Route: 048
     Dates: start: 20150213
  2. PARACETAMOL 650MG [Concomitant]
     Indication: ARTHRALGIA
     Dosage: 650MG EVERY 8 HOURS IF ACCURATE FOR PAIN
     Route: 048
     Dates: start: 20140902
  3. MOXIFLOXACINO (1119A) [Suspect]
     Active Substance: MOXIFLOXACIN HYDROCHLORIDE
     Indication: RESPIRATORY TRACT INFECTION
     Dosage: 400MG EACH 24 HORAS
     Route: 048
     Dates: start: 20170819

REACTIONS (2)
  - Pancreatitis [Recovered/Resolved]
  - Drug interaction [Unknown]

NARRATIVE: CASE EVENT DATE: 20170827
